FAERS Safety Report 18204078 (Version 1)
Quarter: 2020Q3

REPORT INFORMATION
  Report Type: Report from Study
  Country: KR (occurrence: KR)
  Receive Date: 20200827
  Receipt Date: 20200827
  Transmission Date: 20201103
  Serious: Yes (Other)
  Sender: FDA-Public Use
  Company Number: KR-GLAXOSMITHKLINE-KR2020GSK171041

PATIENT
  Age: 36 Year
  Sex: Female

DRUGS (2)
  1. LAMIVUDINE. [Suspect]
     Active Substance: LAMIVUDINE
     Indication: CHRONIC HEPATITIS B
     Dosage: UNK
  2. ADEFOVIR [Suspect]
     Active Substance: ADEFOVIR
     Indication: CHRONIC HEPATITIS B
     Dosage: UNK

REACTIONS (5)
  - Multiple-drug resistance [Unknown]
  - Viral mutation identified [Unknown]
  - Treatment failure [Unknown]
  - Pathogen resistance [Unknown]
  - Hepatitis B DNA increased [Recovered/Resolved]
